FAERS Safety Report 10616034 (Version 1)
Quarter: 2014Q4

REPORT INFORMATION
  Report Type: Spontaneous
  Country: US (occurrence: US)
  Receive Date: 20141201
  Receipt Date: 20141201
  Transmission Date: 20150529
  Serious: No
  Sender: FDA-Public Use
  Company Number: US-CREALTA PHARMACEUTICALS-2014S1000043

PATIENT
  Sex: Female

DRUGS (2)
  1. MIGERGOT [Suspect]
     Active Substance: CAFFEINE\ERGOTAMINE TARTRATE
     Indication: HEADACHE
     Dates: end: 20140422
  2. ERGOTAMINE TARTRATE [Suspect]
     Active Substance: ERGOTAMINE TARTRATE
     Indication: HEADACHE
     Dates: start: 20140426

REACTIONS (3)
  - Malaise [Unknown]
  - Muscle spasms [Unknown]
  - Dizziness [Unknown]

NARRATIVE: CASE EVENT DATE: 2014
